FAERS Safety Report 4897786-9 (Version None)
Quarter: 2006Q1

REPORT INFORMATION
  Report Type: 
  Country: None (occurrence: None)
  Receive Date: 20060130
  Receipt Date: 20060130
  Transmission Date: 20060701
  Serious: Yes (Other)
  Sender: FDA-Public Use
  Company Number: None

PATIENT
  Sex: Female
  Weight: 73.9363 kg

DRUGS (7)
  1. OXYCONTIN [Suspect]
     Indication: BACK PAIN
     Dosage: 40 MG PO QID, 20 MG QID
     Route: 048
     Dates: start: 20050805, end: 20050818
  2. METHADONE [Concomitant]
  3. PROPRANOLOL [Concomitant]
  4. SYNTHROID [Concomitant]
  5. ZAROFLEX [Concomitant]
  6. VERELAN [Concomitant]
  7. HYDROCHLOROTHIAZIDE [Concomitant]

REACTIONS (1)
  - STOMACH DISCOMFORT [None]
